FAERS Safety Report 26021600 (Version 1)
Quarter: 2025Q4

REPORT INFORMATION
  Report Type: Spontaneous
  Country: JP (occurrence: JP)
  Receive Date: 20251110
  Receipt Date: 20251110
  Transmission Date: 20260117
  Serious: Yes (Other)
  Sender: ALEXION PHARMACEUTICALS
  Company Number: JP-ASTRAZENECA-202511JPN004322JP

PATIENT
  Age: 8 Decade
  Sex: Male

DRUGS (1)
  1. ANDEXXA [Suspect]
     Active Substance: ANDEXANET ALFA
     Indication: Arterial haemorrhage
     Dosage: UNK
     Route: 065

REACTIONS (1)
  - Compartment syndrome [Unknown]
